FAERS Safety Report 9371125 (Version 1)
Quarter: 2013Q2

REPORT INFORMATION
  Report Type: Spontaneous
  Country: AU (occurrence: AU)
  Receive Date: 20130627
  Receipt Date: 20130627
  Transmission Date: 20140414
  Serious: Yes (Other)
  Sender: FDA-Public Use
  Company Number: AU-AMGEN-AUSSP2013044798

PATIENT
  Age: 72 Year
  Sex: Male

DRUGS (5)
  1. XGEVA [Suspect]
     Indication: PROSTATE CANCER METASTATIC
     Dosage: UNK
     Dates: start: 201207
  2. PROLIA [Suspect]
     Indication: PROSTATE CANCER METASTATIC
     Dosage: UNK
  3. VITAMIN D                          /00107901/ [Concomitant]
  4. CALCITRIOL [Concomitant]
  5. CITRACAL + D                       /01438101/ [Concomitant]

REACTIONS (3)
  - Wrong drug administered [Not Recovered/Not Resolved]
  - Hypocalcaemia [Not Recovered/Not Resolved]
  - Malaise [Unknown]
